FAERS Safety Report 5620950-8 (Version None)
Quarter: 2008Q1

REPORT INFORMATION
  Report Type: 
  Country: None (occurrence: None)
  Receive Date: 20080208
  Receipt Date: 20080127
  Transmission Date: 20080703
  Serious: Yes (Other)
  Sender: FDA-Public Use
  Company Number: US-PFIZER INC-2008008773

PATIENT
  Sex: Female
  Weight: 56.818 kg

DRUGS (5)
  1. CHANTIX [Suspect]
     Indication: SMOKING CESSATION THERAPY
     Dates: start: 20061201, end: 20070101
  2. ACTONEL [Concomitant]
  3. SYNTHROID [Concomitant]
  4. VITAMINS [Concomitant]
  5. CALCIUM GLUCONATE [Concomitant]

REACTIONS (2)
  - DEPRESSION [None]
  - MECHANICAL COMPLICATION OF IMPLANT [None]
